FAERS Safety Report 5252720-7 (Version None)
Quarter: 2007Q1

REPORT INFORMATION
  Report Type: 
  Country: None (occurrence: None)
  Receive Date: 20070301
  Receipt Date: 20061212
  Transmission Date: 20070707
  Serious: Yes (Hospitalization)
  Sender: FDA-Public Use
  Company Number: US-GLAXOSMITHKLINE-A0627734A

PATIENT
  Age: 25 Year
  Sex: Female
  Weight: 64 kg

DRUGS (3)
  1. LAMICTAL [Suspect]
     Dosage: 25MG TWICE PER DAY
     Route: 048
     Dates: start: 20061105, end: 20061111
  2. KEPPRA [Concomitant]
     Dosage: 1000MG TWICE PER DAY
     Route: 048
  3. DILANTIN [Concomitant]
     Route: 048

REACTIONS (3)
  - DRUG LEVEL DECREASED [None]
  - RASH [None]
  - SWOLLEN TONGUE [None]
